FAERS Safety Report 9775592 (Version 1)
Quarter: 2013Q4

REPORT INFORMATION
  Report Type: Spontaneous
  Country: US (occurrence: None)
  Receive Date: 20131218
  Receipt Date: 20131218
  Transmission Date: 20140711
  Serious: Yes (Death, Other)
  Sender: FDA-Public Use
  Company Number: KAD201312-001621

PATIENT
  Sex: 0

DRUGS (4)
  1. RIBAVIRIN [Suspect]
     Indication: HEPATITIS C
  2. PEGINTERFERON ALFA-2A [Suspect]
     Indication: HEPATITIS C
  3. BOCEPREVIR (BOCEPREVIR) [Suspect]
     Indication: HEPATITIS C
  4. CYCLOSPORINE [Suspect]
     Indication: PROPHYLAXIS AGAINST TRANSPLANT REJECTION

REACTIONS (4)
  - Cystitis [None]
  - Bacteraemia [None]
  - Pancytopenia [None]
  - Toxicity to various agents [None]
